FAERS Safety Report 14561574 (Version 1)
Quarter: 2018Q1

REPORT INFORMATION
  Report Type: Spontaneous
  Country: US (occurrence: US)
  Receive Date: 20180222
  Receipt Date: 20180222
  Transmission Date: 20180509
  Serious: No
  Sender: FDA-Public Use
  Company Number: US-TEVA-793782ACC

PATIENT
  Sex: Male

DRUGS (1)
  1. CETIRIZINE W/PSEUDOEPHEDRINE [Suspect]
     Active Substance: CETIRIZINE HYDROCHLORIDE\PSEUDOEPHEDRINE HYDROCHLORIDE
     Indication: NASAL CONGESTION
     Dosage: 2 DOSAGE FORMS DAILY; PSEUDOEPHEDRINE HYDROCHLORIDE 120 MG, CETIRIZINE HYDROCHOLRIDE 5MG
     Route: 048
     Dates: start: 20170601, end: 20170612

REACTIONS (2)
  - Constipation [Recovered/Resolved]
  - Incorrect drug administration duration [Unknown]

NARRATIVE: CASE EVENT DATE: 201706
